FAERS Safety Report 7247040-5 (Version None)
Quarter: 2011Q1

REPORT INFORMATION
  Report Type: 
  Country: None (occurrence: None)
  Receive Date: 20110127
  Receipt Date: 20110125
  Transmission Date: 20110831
  Serious: Yes (Hospitalization, Disabling, Other)
  Sender: FDA-Public Use
  Company Number: US-AMGEN-QUU434127

PATIENT
  Age: 81 Year
  Sex: Male

DRUGS (5)
  1. NPLATE [Suspect]
     Indication: IDIOPATHIC THROMBOCYTOPENIC PURPURA
     Dosage: 9 A?G/KG, UNK
     Dates: start: 20090714, end: 20091027
  2. DANAZOL [Concomitant]
  3. CORTICOSTEROIDS [Concomitant]
  4. IMMUNOGLOBULINS [Concomitant]
  5. NPLATE [Suspect]
     Dates: start: 20090714, end: 20091027

REACTIONS (3)
  - THERAPEUTIC RESPONSE DECREASED [None]
  - CHRONIC MYELOID LEUKAEMIA [None]
  - BONE MARROW DISORDER [None]
